FAERS Safety Report 9110434 (Version 2)
Quarter: 2013Q1

REPORT INFORMATION
  Report Type: Spontaneous
  Country: US (occurrence: US)
  Receive Date: 20130222
  Receipt Date: 20130225
  Transmission Date: 20140127
  Serious: Yes (Other)
  Sender: FDA-Public Use
  Company Number: US-RB-049944-13

PATIENT
  Age: 61 Year
  Sex: Female

DRUGS (3)
  1. DELSYM ADULT ORANGE [Suspect]
     Indication: PRODUCT USED FOR UNKNOWN INDICATION
     Route: 048
  2. MUCINEX [Suspect]
     Indication: PRODUCT USED FOR UNKNOWN INDICATION
     Route: 048
  3. ANTIBIOTIC [Suspect]
     Indication: PRODUCT USED FOR UNKNOWN INDICATION

REACTIONS (7)
  - Memory impairment [Recovered/Resolved]
  - Confusional state [Recovered/Resolved]
  - Weight decreased [Recovered/Resolved]
  - Circadian rhythm sleep disorder [Recovered/Resolved]
  - Unevaluable event [Recovered/Resolved]
  - Unevaluable event [Recovering/Resolving]
  - Unevaluable event [Recovered/Resolved]
